FAERS Safety Report 9093114 (Version 1)
Quarter: 2013Q1

REPORT INFORMATION
  Report Type: Spontaneous
  Country: US (occurrence: None)
  Receive Date: 20130213
  Receipt Date: 20130213
  Transmission Date: 20140127
  Serious: Yes (Other)
  Sender: FDA-Public Use
  Company Number: None

PATIENT
  Age: 79 Year
  Sex: Male
  Weight: 84.1 kg

DRUGS (2)
  1. CLOPIDOGREL [Suspect]
     Indication: HYPERTENSION
     Dates: start: 20121215, end: 20121220
  2. CLOPIDOGREL [Suspect]
     Indication: CEREBROVASCULAR ACCIDENT
     Dates: start: 20121215, end: 20121220

REACTIONS (5)
  - Product substitution issue [None]
  - Blood pressure increased [None]
  - Dizziness [None]
  - Nausea [None]
  - Balance disorder [None]
